FAERS Safety Report 6414848-5 (Version None)
Quarter: 2009Q4

REPORT INFORMATION
  Report Type: 
  Country: None (occurrence: None)
  Receive Date: 20091026
  Receipt Date: 20081212
  Transmission Date: 20100525
  Serious: No
  Sender: FDA-Public Use
  Company Number: US-ABBOTT-08P-163-0493207-00

PATIENT
  Age: 30 Year
  Sex: Female
  Weight: 44.038 kg

DRUGS (2)
  1. LUPRON DEPOT [Suspect]
     Indication: DRUG USE FOR UNKNOWN INDICATION
  2. LUPRON DEPOT [Suspect]

REACTIONS (2)
  - NEUROMYOPATHY [None]
  - RESORPTION BONE INCREASED [None]
